FAERS Safety Report 7425138-6 (Version None)
Quarter: 2011Q2

REPORT INFORMATION
  Report Type: 
  Country: None (occurrence: None)
  Receive Date: 20110420
  Receipt Date: 20110412
  Transmission Date: 20111010
  Serious: Yes (Other)
  Sender: FDA-Public Use
  Company Number: US-ELI_LILLY_AND_COMPANY-US201104004165

PATIENT
  Sex: Male

DRUGS (5)
  1. HUMULIN 70/30 [Suspect]
     Dosage: 30 U, BID
     Route: 065
     Dates: start: 20100801, end: 20101001
  2. NOVOLIN 70/30 [Concomitant]
  3. GLIMEPIRIDE [Concomitant]
     Dosage: UNK
  4. HUMULIN 70/30 [Suspect]
     Indication: TYPE 1 DIABETES MELLITUS
     Dosage: 30 U, BID
     Route: 065
     Dates: start: 20100801, end: 20101001
  5. METFORMIN HCL [Concomitant]
     Dosage: UNK

REACTIONS (5)
  - RESPIRATORY DISORDER [None]
  - MYOCARDIAL INFARCTION [None]
  - SURGERY [None]
  - HYPOGLYCAEMIC UNCONSCIOUSNESS [None]
  - COUGH [None]
